FAERS Safety Report 9677113 (Version 2)
Quarter: 2014Q2

REPORT INFORMATION
  Report Type: Spontaneous
  Country: US (occurrence: US)
  Receive Date: 20131108
  Receipt Date: 20140416
  Transmission Date: 20141212
  Serious: Yes (Other)
  Sender: FDA-Public Use
  Company Number: US-009507513-1310USA011702

PATIENT
  Age: 52 Year
  Sex: Male

DRUGS (14)
  1. VICTRELIS [Suspect]
     Indication: CHRONIC HEPATITIS C
     Dosage: UNK, THREE TIMES A DAY
     Route: 048
     Dates: start: 20131015, end: 20140408
  2. REBETOL [Suspect]
     Indication: CHRONIC HEPATITIS C
     Dosage: UNK, TWICE A DAY
     Route: 048
     Dates: start: 20130819, end: 20140408
  3. PEGASYS [Suspect]
     Indication: CHRONIC HEPATITIS C
     Dosage: UNK,Q7 DAYS,  INJECTION
     Dates: start: 20130819, end: 20140408
  4. MIRTAZAPINE [Concomitant]
     Dosage: UNK, DAILY
     Route: 048
  5. PROPRANOLOL HYDROCHLORIDE [Concomitant]
     Dosage: UNK,DAILY
  6. PROMETHAZINE [Concomitant]
     Dosage: UNK, AS NEEDED EVERY 6 HR
  7. SUMATRIPTAN [Concomitant]
     Dosage: UNK, AS NEEDED
  8. FLUOXETINE [Concomitant]
     Dosage: UNK,DAILY
  9. ZOLPIDEM TARTRATE [Concomitant]
     Dosage: UNK, DAILY
  10. OMEPRAZOLE [Concomitant]
     Dosage: UNK, TWICE DAILY
     Route: 048
  11. DIAZEPAM [Concomitant]
     Dosage: UNK, TWICE DAILY
     Route: 048
  12. ADVAIR [Concomitant]
     Dosage: UNK, AS NEEDED TWICE DAILY
  13. VENTOLIN (ALBUTEROL SULFATE) [Concomitant]
     Dosage: UNK, AS NEEDED
  14. SPIRIVA [Concomitant]
     Dosage: UNK, DAILY

REACTIONS (11)
  - Deafness [Unknown]
  - Vertigo [Unknown]
  - Influenza like illness [Unknown]
  - Nausea [Unknown]
  - Vomiting [Unknown]
  - Dizziness [Unknown]
  - Rash [Unknown]
  - Fatigue [Unknown]
  - Leukopenia [Unknown]
  - Anaemia [Unknown]
  - Asthenia [Unknown]
